FAERS Safety Report 9799957 (Version 2)
Quarter: 2014Q1

REPORT INFORMATION
  Report Type: Report from Study
  Country: DE (occurrence: DE)
  Receive Date: 20140106
  Receipt Date: 20140324
  Transmission Date: 20141002
  Serious: Yes (Death, Hospitalization)
  Sender: FDA-Public Use
  Company Number: DE-ASTRAZENECA-2014SE00477

PATIENT
  Age: 58 Year
  Sex: Female
  Weight: 95.6 kg

DRUGS (3)
  1. FULVESTRANT [Suspect]
     Indication: BREAST CANCER
     Route: 030
     Dates: start: 20120301, end: 20120329
  2. FUROSEMIDE [Concomitant]
     Indication: OEDEMA
     Route: 048
     Dates: start: 20120410, end: 20120430
  3. SPIRONOLACTON [Concomitant]
     Indication: OEDEMA
     Route: 048
     Dates: start: 20120410, end: 20120430

REACTIONS (2)
  - Death [Fatal]
  - Ascites [Recovered/Resolved]
